FAERS Safety Report 9819369 (Version 2)
Quarter: 2014Q1

REPORT INFORMATION
  Report Type: Spontaneous
  Country: JP (occurrence: JP)
  Receive Date: 20140115
  Receipt Date: 20140122
  Transmission Date: 20141002
  Serious: Yes (Hospitalization)
  Sender: FDA-Public Use
  Company Number: JP-PFIZER INC-2014010567

PATIENT
  Age: 70 Year
  Sex: Male

DRUGS (18)
  1. CELECOX [Suspect]
     Dosage: UNK
     Route: 048
  2. GRACEPTOR [Suspect]
     Indication: RENAL TRANSPLANT
     Dosage: 2 MG, UNKNOWN/D
     Route: 048
  3. HARNAL [Concomitant]
     Dosage: UNK
  4. BIOFERMIN [Concomitant]
     Dosage: UNK
     Route: 048
  5. PARIET [Concomitant]
     Dosage: UNK
  6. PROMAC [Concomitant]
     Dosage: UNK
  7. CELLCEPT [Concomitant]
     Dosage: UNK
  8. EBRANTIL [Concomitant]
     Dosage: UNK
  9. AZILSARTAN [Concomitant]
     Dosage: UNK
  10. CALBLOCK [Concomitant]
     Dosage: UNK
  11. ARTIST [Concomitant]
     Dosage: UNK
  12. MEDROL [Concomitant]
     Dosage: UNK
  13. AMOBAN [Concomitant]
     Dosage: UNK
  14. MUCOSTA [Concomitant]
     Dosage: UNK
  15. LYRICA [Concomitant]
     Dosage: UNK
  16. NEUROTROPIN [Concomitant]
     Dosage: UNK
  17. LIMAPROST ALFADEX [Concomitant]
     Dosage: UNK
  18. RHYTHMY [Concomitant]
     Dosage: UNK

REACTIONS (4)
  - Large intestinal haemorrhage [Recovering/Resolving]
  - Amoebic dysentery [Recovering/Resolving]
  - Dyspepsia [Recovering/Resolving]
  - Amoebic dysentery [Recovering/Resolving]
